FAERS Safety Report 17306553 (Version 1)
Quarter: 2020Q1

REPORT INFORMATION
  Report Type: Report from Study
  Country: US (occurrence: US)
  Receive Date: 20200123
  Receipt Date: 20200123
  Transmission Date: 20200409
  Serious: Yes (Hospitalization, Other)
  Sender: FDA-Public Use
  Company Number: US-HORIZON-ACT-0044-2020

PATIENT
  Sex: Male

DRUGS (2)
  1. IBUPROFEN. [Concomitant]
     Active Substance: IBUPROFEN
     Indication: PREMEDICATION
  2. ACTIMMUNE [Suspect]
     Active Substance: INTERFERON GAMMA-1B
     Indication: PRODUCT USED FOR UNKNOWN INDICATION
     Dosage: 40?G TIW
     Dates: start: 20171009

REACTIONS (6)
  - Abdominal pain upper [Unknown]
  - Arthralgia [Unknown]
  - Pharyngitis streptococcal [Unknown]
  - Paralysis [Unknown]
  - Localised infection [Unknown]
  - Headache [Unknown]

NARRATIVE: CASE EVENT DATE: 201911
